FAERS Safety Report 20227050 (Version 2)
Quarter: 2022Q1

REPORT INFORMATION
  Report Type: Spontaneous
  Country: US (occurrence: US)
  Receive Date: 20211224
  Receipt Date: 20220328
  Transmission Date: 20220423
  Serious: No
  Sender: FDA-Public Use
  Company Number: US-JNJFOC-20211229117

PATIENT
  Age: 99 Year
  Sex: Male

DRUGS (2)
  1. XARELTO [Suspect]
     Active Substance: RIVAROXABAN
     Indication: Cerebrovascular accident prophylaxis
     Route: 048
  2. COVID-19 VACCINE [Concomitant]
     Indication: Immunisation
     Dosage: EL-8982 16-1-2021?EL 9269 6-02-2021?FH 8020  25-10-2021

REACTIONS (3)
  - Drug diversion [Unknown]
  - Product physical issue [Unknown]
  - Product storage error [Unknown]

NARRATIVE: CASE EVENT DATE: 20211201
